FAERS Safety Report 9238087 (Version 1)
Quarter: 2013Q2

REPORT INFORMATION
  Report Type: Report from Study
  Country: US (occurrence: US)
  Receive Date: 20130418
  Receipt Date: 20130418
  Transmission Date: 20140414
  Serious: Yes (Other)
  Sender: FDA-Public Use
  Company Number: PHEH2013US008418

PATIENT
  Age: 72 Year
  Sex: Male
  Weight: 83.9 kg

DRUGS (12)
  1. GLEEVEC [Suspect]
     Dosage: 100 MG (3 TABLET) DAILY
     Route: 048
  2. PRILOSEC [Concomitant]
     Dosage: 20 MG, UNK
     Route: 048
  3. CLONAZEPAM [Concomitant]
     Dosage: 1 MG, UNK
     Route: 048
  4. BRIMONIDINE [Concomitant]
     Dosage: 0.15 %, UNK
     Route: 048
  5. FINASTERIDE [Concomitant]
     Dosage: 5 MG, UNK
     Route: 048
  6. GLUCOSAMINE + CHONDROITIN COMPLEX [Concomitant]
     Dosage: UNK UKN, UNK
     Route: 048
  7. LORATADINE [Concomitant]
     Dosage: 10 MG, UNK
     Route: 048
  8. MULTIVIT [Concomitant]
     Dosage: UNK UKN, UNK
     Route: 048
  9. PRAVASTATIN [Concomitant]
     Dosage: 40 MG, UNK
     Route: 048
  10. LISINOPRIL [Concomitant]
     Dosage: 20 MG, UNK
     Route: 048
  11. FUROSEMIDE [Concomitant]
     Dosage: 20 MG, UNK
     Route: 048
  12. FISH OIL [Concomitant]
     Dosage: UNK UKN, UNK
     Route: 048

REACTIONS (1)
  - Parkinson^s disease [Unknown]
